FAERS Safety Report 21133736 (Version 1)
Quarter: 2022Q3

REPORT INFORMATION
  Report Type: Spontaneous
  Country: US (occurrence: None)
  Receive Date: 20220726
  Receipt Date: 20220726
  Transmission Date: 20221027
  Serious: Yes (unspecified)
  Sender: FDA-Public Use
  Company Number: None

PATIENT
  Age: 74 Year
  Sex: Female

DRUGS (1)
  1. METFORMIN [Suspect]
     Active Substance: METFORMIN HYDROCHLORIDE
     Indication: Diabetes mellitus
     Route: 048

REACTIONS (7)
  - Brain neoplasm malignant [None]
  - Libido disorder [None]
  - Discomfort [None]
  - Stress [None]
  - Product quality issue [None]
  - Product odour abnormal [None]
  - Gastrointestinal disorder [None]

NARRATIVE: CASE EVENT DATE: 20211022
